FAERS Safety Report 7090729-1 (Version None)
Quarter: 2010Q4

REPORT INFORMATION
  Report Type: 
  Country: None (occurrence: None)
  Receive Date: 20101012
  Receipt Date: 20100708
  Transmission Date: 20110411
  Serious: No
  Sender: FDA-Public Use
  Company Number: US-001210

PATIENT
  Sex: Female
  Weight: 105.6881 kg

DRUGS (7)
  1. KUVAN [Suspect]
     Indication: PHENYLKETONURIA
     Dosage: 1600 MG QD ORAL
     Route: 048
     Dates: start: 20100626, end: 20100708
  2. XANAX [Concomitant]
  3. LISINOPRIL AND HYDROCHLOROTHIAZIDE [Concomitant]
  4. COREG [Concomitant]
  5. METFORMIN [Concomitant]
  6. CITALOPRAM HYDROBROMIDE [Concomitant]
  7. NUTRIENTS WITHOUT PHENYLALANINE [Concomitant]

REACTIONS (1)
  - AMINO ACID LEVEL INCREASED [None]
